FAERS Safety Report 12927728 (Version 1)
Quarter: 2016Q4

REPORT INFORMATION
  Report Type: Spontaneous
  Country: BR (occurrence: BR)
  Receive Date: 20161109
  Receipt Date: 20161109
  Transmission Date: 20170207
  Serious: Yes (Other)
  Sender: FDA-Public Use
  Company Number: BR-BRISTOL-MYERS SQUIBB COMPANY-BMS-2016-093488

PATIENT
  Sex: Male

DRUGS (1)
  1. GLIFAGE XR [Suspect]
     Active Substance: METFORMIN HYDROCHLORIDE
     Indication: DIABETES MELLITUS
     Dosage: 2 DF, UNK
     Route: 048

REACTIONS (6)
  - Visual impairment [Unknown]
  - Drug prescribing error [Unknown]
  - Blood glucose increased [Unknown]
  - Incorrect dose administered [Unknown]
  - Infarction [Unknown]
  - Pruritus [Unknown]
